FAERS Safety Report 13938759 (Version 1)
Quarter: 2017Q3

REPORT INFORMATION
  Report Type: Spontaneous
  Country: US (occurrence: None)
  Receive Date: 20170905
  Receipt Date: 20170905
  Transmission Date: 20171127
  Serious: Yes (Hospitalization)
  Sender: FDA-Public Use
  Company Number: None

PATIENT
  Age: 64 Year
  Sex: Male

DRUGS (1)
  1. OPSUMIT [Suspect]
     Active Substance: MACITENTAN
     Indication: PULMONARY ARTERIAL HYPERTENSION
     Route: 048
     Dates: start: 20170717

REACTIONS (5)
  - Lethargy [None]
  - Dyspnoea [None]
  - Productive cough [None]
  - Treatment noncompliance [None]
  - Oedema peripheral [None]

NARRATIVE: CASE EVENT DATE: 20170810
